FAERS Safety Report 7706830-2 (Version None)
Quarter: 2011Q3

REPORT INFORMATION
  Report Type: 
  Country: None (occurrence: None)
  Receive Date: 20110818
  Receipt Date: 20110809
  Transmission Date: 20111222
  Serious: Yes (Other)
  Sender: FDA-Public Use
  Company Number: 2011SP037659

PATIENT
  Age: 8 Month
  Sex: Female
  Weight: 6 kg

DRUGS (3)
  1. AMOXICILLIN [Concomitant]
  2. CLARITIN (LORATADINE 5MG/PSEUDOEPHEDRINE SULFATE 120 MG) (LORATADINE W [Suspect]
     Indication: ERYTHEMA
     Dosage: 1.5 ML, QD, PO
     Route: 048
     Dates: start: 20110808, end: 20110808
  3. FUROSEMIDE [Concomitant]

REACTIONS (2)
  - DRUG INEFFECTIVE [None]
  - ANURIA [None]
